FAERS Safety Report 24773005 (Version 1)
Quarter: 2024Q4

REPORT INFORMATION
  Report Type: Spontaneous
  Country: GB (occurrence: GB)
  Receive Date: 20241225
  Receipt Date: 20241225
  Transmission Date: 20250115
  Serious: Yes (Death, Other)
  Sender: Unknown Manufacturer
  Company Number: None

PATIENT
  Age: 74 Year
  Sex: Male

DRUGS (22)
  1. METFORMIN [Suspect]
     Active Substance: METFORMIN HYDROCHLORIDE
     Indication: Product used for unknown indication
     Dosage: METFORMIN 500 MG TABLETS 2 DAILY WITH FOOD
  2. EMPAGLIFLOZIN [Suspect]
     Active Substance: EMPAGLIFLOZIN
     Indication: Product used for unknown indication
     Dosage: EMPAGLIFLOZIN 10 MG TABLETS 1 DAILY WITH FOOD
  3. GLYCERIN [Concomitant]
     Active Substance: GLYCERIN
     Indication: Product used for unknown indication
     Dosage: 4 G SUPPOSITORIES ONE TO BE INSERTED DAILY AS DIRECTED
  4. FELODIPINE [Concomitant]
     Active Substance: FELODIPINE
     Indication: Product used for unknown indication
  5. RAMIPRIL [Concomitant]
     Active Substance: RAMIPRIL
     Indication: Product used for unknown indication
     Dosage: 5 MG CAPSULES ONE TO BE TAKEN DAILY
  6. MONTELUKAST [Concomitant]
     Active Substance: MONTELUKAST SODIUM
     Indication: Product used for unknown indication
     Dosage: 10 MG TABLETS ONE TO BE TAKEN AT NIGHT
  7. LACTULOSE [Concomitant]
     Active Substance: LACTULOSE
     Indication: Product used for unknown indication
     Dosage: 3.1-3.7 G / 5 ML ORAL SOLUTION ?ONE-THREE 5 ML SPOONFULS TO BE TAKEN UP TO TWICE A DAY
     Route: 048
  8. ASPIRIN [Concomitant]
     Active Substance: ASPIRIN
     Indication: Product used for unknown indication
     Dosage: 75 MG DISPERSIBLE TABLETS ONE TO BE TAKEN EACH DAY
  9. Saline Steripoules [Concomitant]
     Indication: Product used for unknown indication
     Dosage: 2.5 ML UNIT DOSE AMPOULES AS DIRECTED
  10. ALFUZOSIN [Concomitant]
     Active Substance: ALFUZOSIN
     Indication: Product used for unknown indication
     Dosage: 10 MG MODIFIED-RELEASE TABLETS ONE TO BE TAKEN EACH MORNING
  11. COCODAMOL [Concomitant]
     Active Substance: ACETAMINOPHEN\CODEINE PHOSPHATE
     Indication: Product used for unknown indication
     Dosage: 30 MG / 500 MG ?TABLETS ONE OR TWO TO BE TAKEN FOUR TIMES A DAY?WHEN REQUIRED
  12. Epaderm ointment [Concomitant]
     Indication: Product used for unknown indication
     Dosage: AS DIRECTED
  13. Ventolin 100 micrograms / dose  Evohaler [Concomitant]
     Indication: Product used for unknown indication
     Dosage: ONE OR TWO PUFFS TO BE INHALED FOUR TIMES A DAY WHEN REQUIRED
     Route: 055
  14. CALCIUM\CHOLECALCIFEROL [Concomitant]
     Active Substance: CALCIUM\CHOLECALCIFEROL
     Indication: Product used for unknown indication
     Dosage: CHEWABLE TABLETS ONE TO BE TAKEN IN THE MORNING
  15. SOLIFENACIN [Concomitant]
     Active Substance: SOLIFENACIN
     Indication: Product used for unknown indication
     Dosage: 5 MG TABLETS ONE TO BE TAKEN EACH DAY
  16. CARBOCYSTEINE [Concomitant]
     Active Substance: CARBOCYSTEINE
     Indication: Product used for unknown indication
     Dosage: 375 MG CAPSULES TWO TO BE TAKEN THREE TIMES A DAY
  17. TRELEGY ELLIPTA [Concomitant]
     Active Substance: FLUTICASONE FUROATE\UMECLIDINIUM BROMIDE\VILANTEROL TRIFENATATE
     Indication: Product used for unknown indication
     Dosage: 92 / 55 / 22 MICROGRAMS / DOSE DRY POWDER INHALER ONE PUFF ONCE DAILY
     Route: 055
  18. MIZOLASTINE [Concomitant]
     Active Substance: MIZOLASTINE
     Indication: Product used for unknown indication
     Dosage: 10 MG MODIFIED-RELEASE TABLETS ONE TO BE TAKEN EACH DAY
  19. CALCIUM CARBONATE\SODIUM ALGINATE\SODIUM BICARBONATE [Concomitant]
     Active Substance: CALCIUM CARBONATE\SODIUM ALGINATE\SODIUM BICARBONATE
     Indication: Product used for unknown indication
     Dosage: PEPTAC LIQUID PEPPERMINT 10-20 ML TO BE TAKEN AFTER MEALS AND AT BEDTIME
  20. FOLIC ACID [Concomitant]
     Active Substance: FOLIC ACID
     Indication: Product used for unknown indication
     Dosage: 5 MG TABLETS ONE TO BE TAKEN EACH DAY
  21. ALBUTEROL [Concomitant]
     Active Substance: ALBUTEROL
     Indication: Product used for unknown indication
     Dosage: 2.5 MG / 2.5 ML NEBULISER LIQUID UNIT DOSE VIALS ?ONE DOSE TO BE INHALED FOUR TIMES A DAY WHEN REQUI
     Route: 055
  22. GLICLAZIDE [Concomitant]
     Active Substance: GLICLAZIDE
     Indication: Product used for unknown indication
     Dosage: WITH FOOD
     Dates: end: 20241205

REACTIONS (2)
  - Diabetic ketoacidosis [Fatal]
  - Lactic acidosis [Not Recovered/Not Resolved]
